FAERS Safety Report 8325162-5 (Version None)
Quarter: 2012Q2

REPORT INFORMATION
  Report Type: 
  Country: None (occurrence: None)
  Receive Date: 20120501
  Receipt Date: 20100402
  Transmission Date: 20120825
  Serious: No
  Sender: FDA-Public Use
  Company Number: US-TEVA-2010001936

PATIENT
  Sex: Female

DRUGS (3)
  1. NUVIGIL [Suspect]
     Dosage: 225 MILLIGRAM;
     Route: 048
     Dates: start: 20100401
  2. NUVIGIL [Suspect]
     Dosage: 300 MILLIGRAM;
     Route: 048
     Dates: start: 20100331, end: 20100331
  3. NUVIGIL [Suspect]
     Indication: MULTIPLE SCLEROSIS
     Dosage: 150 MILLIGRAM;
     Route: 048
     Dates: start: 20100101, end: 20100330

REACTIONS (3)
  - INSOMNIA [None]
  - DRUG TOLERANCE [None]
  - INTENTIONAL DRUG MISUSE [None]
